FAERS Safety Report 8972949 (Version 2)
Quarter: 2012Q4

REPORT INFORMATION
  Report Type: 
  Country: IN (occurrence: IN)
  Receive Date: 20121219
  Receipt Date: 20121228
  Transmission Date: 20130627
  Serious: Yes (Life-Threatening, Hospitalization, Other)
  Sender: FDA-Public Use
  Company Number: IN-RANBAXY-2012RR-63315

PATIENT
  Age: 37 Year
  Sex: Male
  Weight: 68 kg

DRUGS (1)
  1. MIDAZOLAM [Suspect]
     Indication: ANXIETY
     Dosage: 2 mg, UNK
     Route: 042

REACTIONS (1)
  - Anaphylactoid reaction [Recovered/Resolved]
